FAERS Safety Report 24237291 (Version 1)
Quarter: 2024Q3

REPORT INFORMATION
  Report Type: Spontaneous
  Country: PT (occurrence: PT)
  Receive Date: 20240822
  Receipt Date: 20240822
  Transmission Date: 20241016
  Serious: Yes (Death)
  Sender: Integrated Therapeutic Solutions
  Company Number: PT-Integrated Therapeutic Solutions Inc.-2160688

PATIENT
  Age: 67 Year
  Sex: Male

DRUGS (1)
  1. PYLERA [Suspect]
     Active Substance: BISMUTH SUBCITRATE POTASSIUM\METRONIDAZOLE\TETRACYCLINE HYDROCHLORIDE
     Indication: Product used for unknown indication
     Dates: start: 20240719, end: 20240729

REACTIONS (5)
  - Sudden death [Fatal]
  - Dizziness [Unknown]
  - Malaise [Unknown]
  - Somnolence [Unknown]
  - Pain [Unknown]

NARRATIVE: CASE EVENT DATE: 20240719
